FAERS Safety Report 17077666 (Version 4)
Quarter: 2020Q2

REPORT INFORMATION
  Report Type: Spontaneous
  Country: DE (occurrence: DE)
  Receive Date: 20191126
  Receipt Date: 20200526
  Transmission Date: 20200713
  Serious: Yes (Hospitalization, Other)
  Sender: FDA-Public Use
  Company Number: DE-AMGEN-DEUSP2019192944

PATIENT
  Age: 10 Week
  Sex: Female

DRUGS (14)
  1. THYMOGLOBULIN [Concomitant]
     Active Substance: LAPINE T-LYMPHOCYTE IMMUNE GLOBULIN
  2. INOTUZUMAB OZOGAMICIN [Suspect]
     Active Substance: INOTUZUMAB OZOGAMICIN
     Indication: PRODUCT USED FOR UNKNOWN INDICATION
     Dosage: 0.8 MILLIGRAM/SQ. METER
     Route: 065
  3. FLUDARABINE [Concomitant]
     Active Substance: FLUDARABINE PHOSPHATE
  4. LIPOSOMAL DOXORUBICIN HCL [Concomitant]
     Active Substance: DOXORUBICIN HYDROCHLORIDE
  5. CYCLOPHOSPHAMIDE. [Concomitant]
     Active Substance: CYCLOPHOSPHAMIDE
  6. CYTARABINE. [Concomitant]
     Active Substance: CYTARABINE
  7. CLOFARABINE. [Concomitant]
     Active Substance: CLOFARABINE
  8. BUSULFAN. [Concomitant]
     Active Substance: BUSULFAN
  9. GRANULOCYTE COLONY STIMULATING FACTOR [Concomitant]
     Active Substance: GRANULOCYTE COLONY-STIMULATING FACTOR NOS
  10. DARATUMUMAB [Concomitant]
     Active Substance: DARATUMUMAB
     Dosage: 16 MILLIGRAM/KILOGRAM, ALTERNATINGLY TWICE, TWO WEEKS APART
  11. BLINATUMOMAB [Suspect]
     Active Substance: BLINATUMOMAB
     Indication: ACUTE LYMPHOCYTIC LEUKAEMIA
     Dosage: UNK
     Route: 065
  12. GEMTUZUMAB OZOGAMICIN [Concomitant]
     Active Substance: GEMTUZUMAB OZOGAMICIN
     Dosage: 6 MILLIGRAM/SQ. METER, BID, TWO WEEKS APART
  13. ETOPOSIDE. [Concomitant]
     Active Substance: ETOPOSIDE
  14. MERCAPTOPURINE. [Concomitant]
     Active Substance: MERCAPTOPURINE

REACTIONS (6)
  - Renal impairment [Recovered/Resolved]
  - Lung disorder [Recovered/Resolved]
  - Venoocclusive liver disease [Recovered/Resolved]
  - Acute lymphocytic leukaemia refractory [Recovered/Resolved]
  - Bone marrow failure [Recovered/Resolved]
  - Tumour lysis syndrome [Recovered/Resolved]
